FAERS Safety Report 5396830-2 (Version None)
Quarter: 2007Q3

REPORT INFORMATION
  Report Type: 
  Country: None (occurrence: None)
  Receive Date: 20070725
  Receipt Date: 20070105
  Transmission Date: 20080115
  Serious: No
  Sender: FDA-Public Use
  Company Number: US-AMGEN-KDL195859

PATIENT
  Sex: Female
  Weight: 45.4 kg

DRUGS (9)
  1. PROCRIT [Suspect]
     Indication: RENAL FAILURE CHRONIC
     Route: 058
     Dates: start: 19940101, end: 20061101
  2. FOLIC ACID [Concomitant]
  3. VENOFER [Concomitant]
     Route: 042
  4. FORTEO [Concomitant]
  5. VITAMIN B-12 [Concomitant]
  6. INDERAL LA [Concomitant]
  7. NEXIUM [Concomitant]
  8. ESTRADIOL [Concomitant]
  9. THYROID TAB [Concomitant]

REACTIONS (13)
  - ARTHROPATHY [None]
  - ASTHENIA [None]
  - BLOOD IRON DECREASED [None]
  - CONDITION AGGRAVATED [None]
  - DIZZINESS [None]
  - DYSPNOEA [None]
  - HEADACHE [None]
  - LOSS OF CONSCIOUSNESS [None]
  - MALAISE [None]
  - NAUSEA [None]
  - PNEUMONIA [None]
  - THERAPEUTIC RESPONSE DECREASED [None]
  - TRANSFERRIN SATURATION DECREASED [None]
